FAERS Safety Report 18309575 (Version 1)
Quarter: 2020Q3

REPORT INFORMATION
  Report Type: Report from Study
  Country: None (occurrence: FR)
  Receive Date: 20200925
  Receipt Date: 20200925
  Transmission Date: 20201103
  Serious: Yes (Hospitalization)
  Sender: FDA-Public Use
  Company Number: FR-ABBVIE-20K-056-3575359-00

PATIENT
  Age: 37 Year
  Sex: Male

DRUGS (2)
  1. IMRALDI [Suspect]
     Active Substance: ADALIMUMAB
     Indication: CROHN^S DISEASE
     Dosage: 160/80/40 INDUCTION DOSES
     Route: 058
     Dates: start: 20200228, end: 20200626
  2. HUMIRA [Suspect]
     Active Substance: ADALIMUMAB
     Indication: PRODUCT USED FOR UNKNOWN INDICATION
     Dosage: UNKNOWN WITH INDUCTION SCHEDULE 160/80/40.
     Route: 058
     Dates: start: 20200228

REACTIONS (8)
  - Asthenia [Unknown]
  - Chills [Unknown]
  - Therapeutic product effect incomplete [Unknown]
  - Subcutaneous abscess [Recovered/Resolved]
  - Abdominal pain lower [Unknown]
  - Pyrexia [Recovered/Resolved]
  - Decreased appetite [Unknown]
  - Hyperthermia [Recovered/Resolved]

NARRATIVE: CASE EVENT DATE: 20200716
